FAERS Safety Report 17600029 (Version 3)
Quarter: 2020Q2

REPORT INFORMATION
  Report Type: Spontaneous
  Country: US (occurrence: US)
  Receive Date: 20200330
  Receipt Date: 20200408
  Transmission Date: 20200713
  Serious: Yes (Death)
  Sender: FDA-Public Use
  Company Number: US-PFIZER INC-2020128210

PATIENT
  Age: 23 Year
  Sex: Male

DRUGS (6)
  1. RITUXIMAB. [Suspect]
     Active Substance: RITUXIMAB
     Indication: KAPOSI^S SARCOMA
     Dosage: UNK, MONOTHERAPY
  2. DOXORUBICIN HCL [Suspect]
     Active Substance: DOXORUBICIN HYDROCHLORIDE
     Indication: KAPOSI^S SARCOMA
     Dosage: UNK
  3. DOXORUBICIN HCL [Suspect]
     Active Substance: DOXORUBICIN HYDROCHLORIDE
     Indication: CYTOKINE RELEASE SYNDROME
     Dosage: UNK, DOSED AT A 75% DOSE REDUCTION
  4. RITUXIMAB. [Suspect]
     Active Substance: RITUXIMAB
     Indication: CYTOKINE RELEASE SYNDROME
  5. DOXORUBICIN HCL [Suspect]
     Active Substance: DOXORUBICIN HYDROCHLORIDE
     Dosage: UNK, AT 50% DOSE REDUCTION
  6. GANCICLOVIR. [Concomitant]
     Active Substance: GANCICLOVIR
     Indication: EPSTEIN-BARR VIRUS INFECTION
     Dosage: UNK

REACTIONS (1)
  - Drug ineffective [Fatal]
